FAERS Safety Report 7048980-2 (Version None)
Quarter: 2010Q4

REPORT INFORMATION
  Report Type: 
  Country: None (occurrence: None)
  Receive Date: 20101007
  Receipt Date: 20100922
  Transmission Date: 20110411
  Serious: Yes (Other)
  Sender: FDA-Public Use
  Company Number: AUR-APL-2010-02394

PATIENT
  Age: 49 Year
  Sex: Male

DRUGS (3)
  1. METFORMIN [Suspect]
     Dosage: 1000MG, BID,
  2. GLIPIZIDE [Suspect]
     Dosage: BID,
  3. LANTUS [Concomitant]

REACTIONS (1)
  - LIVER INJURY [None]
